FAERS Safety Report 18693339 (Version 1)
Quarter: 2021Q1

REPORT INFORMATION
  Report Type: Spontaneous
  Country: SA (occurrence: SA)
  Receive Date: 20210104
  Receipt Date: 20210104
  Transmission Date: 20210419
  Serious: Yes (Hospitalization, Other)
  Sender: FDA-Public Use
  Company Number: SA-LUPIN PHARMACEUTICALS INC.-2020-11230

PATIENT
  Age: 18 Year
  Sex: Male

DRUGS (8)
  1. NOREPINEPHRINE. [Concomitant]
     Active Substance: NOREPINEPHRINE
     Indication: ENDOCARDITIS
     Dosage: 0.03 MICROGRAM/KILOGRAM  INITIALLY AND THEN TITRATED ACCORDING TO BLOOD PRESSURE.
     Route: 065
  2. CEFTRIAXONE. [Suspect]
     Active Substance: CEFTRIAXONE
     Indication: ANTIBIOTIC THERAPY
     Dosage: UNK
     Route: 042
  3. VANCOMYCIN HYDROCHLORIDE. [Suspect]
     Active Substance: VANCOMYCIN HYDROCHLORIDE
     Indication: ANTIBIOTIC THERAPY
     Dosage: UNK,INITIAL DOSAGE NOT STATED
     Route: 042
  4. VANCOMYCIN HYDROCHLORIDE. [Suspect]
     Active Substance: VANCOMYCIN HYDROCHLORIDE
     Dosage: 1 GRAM, BID
     Route: 042
  5. GENTAMYCINE [GENTAMICIN] [Suspect]
     Active Substance: GENTAMICIN
     Dosage: 60 MILLIGRAM, TID
     Route: 042
  6. FUROSEMIDE. [Concomitant]
     Active Substance: FUROSEMIDE
     Indication: ENDOCARDITIS
     Dosage: 10 MILLIGRAM, HOURLY
     Route: 042
  7. GENTAMYCINE [GENTAMICIN] [Suspect]
     Active Substance: GENTAMICIN
     Indication: ANTIBIOTIC THERAPY
     Dosage: UNK,INITIAL DOSAGE NOT STATED
     Route: 042
  8. TAZOBACTAM SODIUM AND PIPERACILLIN SODIUM [Suspect]
     Active Substance: PIPERACILLIN SODIUM\TAZOBACTAM SODIUM
     Indication: ANTIBIOTIC THERAPY
     Dosage: 4.5 GRAM, 6 HOURLY
     Route: 042

REACTIONS (1)
  - Neutropenia [Recovered/Resolved]
